APPROVED DRUG PRODUCT: DEXAMETHASONE
Active Ingredient: DEXAMETHASONE
Strength: 1.5MG
Dosage Form/Route: TABLET;ORAL
Application: A088237 | Product #001
Applicant: KEY THERAPEUTICS LLC
Approved: Apr 28, 1983 | RLD: No | RS: No | Type: DISCN